FAERS Safety Report 4482006-X (Version None)
Quarter: 2004Q4

REPORT INFORMATION
  Report Type: 
  Country: None (occurrence: None)
  Receive Date: 20041020
  Receipt Date: 20041006
  Transmission Date: 20050328
  Serious: Yes (Hospitalization)
  Sender: FDA-Public Use
  Company Number: FABR-10815

PATIENT
  Age: 45 Year
  Sex: Male
  Weight: 70 kg

DRUGS (9)
  1. FABRAZYME [Suspect]
     Indication: FABRY'S DISEASE
     Dosage: 70 MG Q2WKS IV
     Route: 042
     Dates: start: 20020528
  2. INSULIN [Concomitant]
  3. PREDNISONE [Concomitant]
  4. METOPROLOL SUCCINATE [Concomitant]
  5. CLONIDINE HCL [Concomitant]
  6. SALICYLIC ACID [Concomitant]
  7. FUROSEMIDE [Concomitant]
  8. AMITRIPTYLINE HCL [Concomitant]
  9. ATORVASTATIN [Concomitant]

REACTIONS (2)
  - LIMB INJURY [None]
  - NECROSIS [None]
